FAERS Safety Report 19374982 (Version 1)
Quarter: 2021Q2

REPORT INFORMATION
  Report Type: Spontaneous
  Country: FR (occurrence: FR)
  Receive Date: 20210604
  Receipt Date: 20210604
  Transmission Date: 20210717
  Serious: Yes (Hospitalization)
  Sender: FDA-Public Use
  Company Number: FR-TEVA-2021-FR-1917968

PATIENT
  Age: 75 Year
  Sex: Female
  Weight: 64 kg

DRUGS (5)
  1. CARBOPLATINE [Suspect]
     Active Substance: CARBOPLATIN
     Indication: ENDOMETRIAL ADENOCARCINOMA
     Dosage: 150 MG
     Route: 041
     Dates: start: 20210225, end: 20210225
  2. ONDANSETRON [Concomitant]
     Active Substance: ONDANSETRON
     Indication: CHEMOTHERAPY SIDE EFFECT PROPHYLAXIS
     Dosage: 8 MG
     Route: 040
     Dates: start: 20210225, end: 20210225
  3. PACLITAXEL KABI [Concomitant]
     Active Substance: PACLITAXEL
     Indication: ENDOMETRIAL ADENOCARCINOMA
     Dosage: 120 MG
     Route: 041
     Dates: start: 20210225, end: 20210225
  4. METHYLPREDNISOLONE MYLAN [Concomitant]
     Active Substance: METHYLPREDNISOLONE
     Indication: CHEMOTHERAPY SIDE EFFECT PROPHYLAXIS
     Dosage: 60 MG
     Route: 040
     Dates: start: 20210225, end: 20210225
  5. POLARAMINE [Concomitant]
     Active Substance: DEXCHLORPHENIRAMINE MALEATE
     Indication: CHEMOTHERAPY SIDE EFFECT PROPHYLAXIS
     Dosage: 2.5 MG
     Route: 040
     Dates: start: 20210225, end: 20210225

REACTIONS (1)
  - Infusion related reaction [Recovered/Resolved]

NARRATIVE: CASE EVENT DATE: 20210225
